FAERS Safety Report 5899904-2 (Version None)
Quarter: 2008Q3

REPORT INFORMATION
  Report Type: 
  Country: None (occurrence: None)
  Receive Date: 20080925
  Receipt Date: 20080925
  Transmission Date: 20090109
  Serious: Yes (Hospitalization)
  Sender: FDA-Public Use
  Company Number: None

PATIENT
  Age: 25 Year
  Sex: Female
  Weight: 52.1637 kg

DRUGS (1)
  1. YAZ [Suspect]
     Indication: DYSMENORRHOEA
     Dosage: 1 DAILY PO
     Route: 048
     Dates: start: 20070901, end: 20070904

REACTIONS (4)
  - BACK PAIN [None]
  - HEART RATE INCREASED [None]
  - NECK PAIN [None]
  - PULMONARY EMBOLISM [None]
